FAERS Safety Report 15368809 (Version 1)
Quarter: 2018Q3

REPORT INFORMATION
  Report Type: Spontaneous
  Country: FR (occurrence: FR)
  Receive Date: 20180911
  Receipt Date: 20180911
  Transmission Date: 20181010
  Serious: Yes (Hospitalization)
  Sender: FDA-Public Use
  Company Number: FR-TEVA-2018-FR-953312

PATIENT
  Age: 91 Year
  Sex: Female
  Weight: 44 kg

DRUGS (3)
  1. TRAMADOL (CHLORHYDRATE DE) [Suspect]
     Active Substance: TRAMADOL HYDROCHLORIDE
     Indication: SCIATICA
     Dosage: 50 MILLIGRAM DAILY;
     Route: 048
     Dates: end: 20180806
  2. LYRICA [Suspect]
     Active Substance: PREGABALIN
     Dosage: 50 MILLIGRAM DAILY;
     Route: 048
  3. TOVIAZ [Suspect]
     Active Substance: FESOTERODINE FUMARATE
     Indication: URINARY INCONTINENCE
     Dosage: 8 MILLIGRAM DAILY;
     Route: 048
     Dates: end: 20180806

REACTIONS (4)
  - Nausea [Recovering/Resolving]
  - Diarrhoea [Recovering/Resolving]
  - Hyponatraemia [Recovered/Resolved]
  - Vomiting [Recovering/Resolving]

NARRATIVE: CASE EVENT DATE: 20180804
